FAERS Safety Report 11062395 (Version 1)
Quarter: 2015Q2

REPORT INFORMATION
  Report Type: Spontaneous
  Country: DE (occurrence: DE)
  Receive Date: 20150424
  Receipt Date: 20150424
  Transmission Date: 20150821
  Serious: Yes (Death)
  Sender: FDA-Public Use
  Company Number: DE-TEVA-556003GER

PATIENT
  Age: 55 Year
  Sex: Female

DRUGS (3)
  1. DOXYLAMINE [Suspect]
     Active Substance: DOXYLAMINE
     Dosage: AN EMPTY BLISTER PACK OF 10 DOXYLAMINE 25MG PILLS FOUND
     Route: 048
  2. IBUPROFEN. [Suspect]
     Active Substance: IBUPROFEN
     Dosage: 2 EMPTY BLISTER PACKS OF 10 IBUPROFEN 400MG PILLS FOUND
     Route: 048
  3. ZALEPLON. [Suspect]
     Active Substance: ZALEPLON
     Route: 048

REACTIONS (3)
  - Toxicity to various agents [Fatal]
  - Completed suicide [Fatal]
  - Overdose [Unknown]
